FAERS Safety Report 18203540 (Version 1)
Quarter: 2020Q3

REPORT INFORMATION
  Report Type: Report from Study
  Country: ES (occurrence: ES)
  Receive Date: 20200827
  Receipt Date: 20200827
  Transmission Date: 20201103
  Serious: Yes (Other)
  Sender: FDA-Public Use
  Company Number: ES-MYLANLABS-2020M1073229

PATIENT
  Age: 67 Year
  Sex: Female
  Weight: 49 kg

DRUGS (57)
  1. MYCOPHENOLATE MOFETIL. [Suspect]
     Active Substance: MYCOPHENOLATE MOFETIL
     Dosage: 720 MILLIGRAM, QD
     Dates: start: 20190919, end: 20191128
  2. PREDNISONE. [Suspect]
     Active Substance: PREDNISONE
     Dosage: 15 MILLIGRAM, QD
     Dates: start: 20190926, end: 20191024
  3. VALGANCICLOVIR. [Concomitant]
     Active Substance: VALGANCICLOVIR
     Indication: ANTIVIRAL TREATMENT
     Dosage: UNK
     Dates: start: 20191129, end: 20200227
  4. SODIUM BICARBONATE. [Concomitant]
     Active Substance: SODIUM BICARBONATE
     Indication: ANTACID THERAPY
     Dosage: UNK
     Dates: start: 20190828, end: 20190829
  5. LORAZEPAM. [Concomitant]
     Active Substance: LORAZEPAM
     Indication: FEELING OF RELAXATION
     Dosage: UNK
     Dates: start: 20200525, end: 20200525
  6. CALCIFEDIOL [Concomitant]
     Active Substance: CALCIFEDIOL
     Indication: OSTEOPOROSIS
     Dosage: UNK
     Dates: start: 20200527
  7. MYCOPHENOLATE MOFETIL. [Suspect]
     Active Substance: MYCOPHENOLATE MOFETIL
     Indication: IMMUNOSUPPRESSANT DRUG THERAPY
     Dosage: 1440 MILLIGRAM, QD
     Dates: start: 20190820, end: 20190919
  8. METHYLPREDNISOLONE. [Suspect]
     Active Substance: METHYLPREDNISOLONE
     Dosage: 40 MG, QD
     Dates: start: 20190826, end: 20190826
  9. ENVARSUS XR [Suspect]
     Active Substance: TACROLIMUS
     Dosage: 4 MILLIGRAM, QD
     Dates: start: 20190926, end: 20190927
  10. COTRIMOXAZOLE [Concomitant]
     Active Substance: SULFAMETHOXAZOLE\TRIMETHOPRIM
     Indication: ANTIBIOTIC THERAPY
     Dosage: UNK
     Dates: start: 20200522
  11. ENVARSUS XR [Suspect]
     Active Substance: TACROLIMUS
     Dosage: 7 MILLIGRAM, QD
     Route: 048
     Dates: start: 20190826, end: 20190827
  12. ENVARSUS XR [Suspect]
     Active Substance: TACROLIMUS
     Dosage: 2 MILLIGRAM, QD
     Dates: start: 20190927, end: 20191024
  13. CLONAZEPAM. [Concomitant]
     Active Substance: CLONAZEPAM
     Indication: ANXIETY
     Dosage: UNK
     Dates: start: 20190823, end: 20190823
  14. SALMETEROL [Concomitant]
     Active Substance: SALMETEROL
     Indication: ASTHMA
     Dosage: UNK
     Dates: start: 20200521, end: 20200527
  15. DEXCHLORPHENIRAMINE [Concomitant]
     Active Substance: DEXCHLORPHENIRAMINE
     Indication: ANTIALLERGIC THERAPY
     Dosage: UNK
     Dates: start: 20190823, end: 20190824
  16. TIOTROPIUM [Concomitant]
     Active Substance: TIOTROPIUM
     Indication: BLOOD THYROID STIMULATING HORMONE
     Dosage: UNK
     Dates: start: 20190821
  17. METAMIZOLE [Concomitant]
     Active Substance: METAMIZOLE
     Indication: ANALGESIC THERAPY
     Dosage: UNK
     Dates: start: 20200501, end: 20200525
  18. PREDNISONE. [Suspect]
     Active Substance: PREDNISONE
     Dosage: 10 MILLIGRAM, QD
     Dates: start: 20191025, end: 20191121
  19. PREDNISONE. [Suspect]
     Active Substance: PREDNISONE
     Dosage: 15 MILLIGRAM, QD
     Dates: start: 20190904, end: 20191024
  20. PARACETAMOL [Concomitant]
     Active Substance: ACETAMINOPHEN
     Indication: ANTIINFLAMMATORY THERAPY
     Dosage: UNK
     Dates: start: 20180821
  21. FOSFOMYCIN [Concomitant]
     Active Substance: FOSFOMYCIN
     Indication: ANTIBIOTIC THERAPY
     Dosage: UNK
     Dates: start: 20190920, end: 20190920
  22. PAROXETINE. [Concomitant]
     Active Substance: PAROXETINE
     Indication: DEPRESSION
     Dosage: UNK
     Dates: start: 20190821, end: 20190823
  23. ENVARSUS XR [Suspect]
     Active Substance: TACROLIMUS
     Indication: IMMUNOSUPPRESSANT DRUG THERAPY
     Dosage: 6.75 MG, QD
     Route: 048
     Dates: start: 20190827, end: 20190830
  24. ENVARSUS XR [Suspect]
     Active Substance: TACROLIMUS
     Dosage: 3 MILLIGRAM, QD
     Dates: start: 20191025, end: 20191128
  25. ENVARSUS XR [Suspect]
     Active Substance: TACROLIMUS
     Dosage: 6 MILLIGRAM, QD
     Route: 048
     Dates: start: 20190831, end: 20190905
  26. PREDNISONE. [Suspect]
     Active Substance: PREDNISONE
     Dosage: 10 MILLIGRAM, QD
     Dates: start: 20190919, end: 20190926
  27. TIMOGLOBULINA                      /00575401/ [Suspect]
     Active Substance: THYMOCYTE IMMUNE GLOBULIN NOS
     Dosage: 50 MG, QD
     Dates: start: 20190823, end: 20190823
  28. PANTOPRAZOLE [Concomitant]
     Active Substance: PANTOPRAZOLE
     Indication: PROPHYLAXIS AGAINST GASTROINTESTINAL ULCER
     Dosage: UNK
     Dates: start: 20190821, end: 20190822
  29. ENOXAPARIN [Concomitant]
     Active Substance: ENOXAPARIN
     Indication: ANTICOAGULANT THERAPY
     Dosage: UNK
     Dates: start: 20190820, end: 20190822
  30. TRAMADOL. [Concomitant]
     Active Substance: TRAMADOL
     Indication: ANALGESIC THERAPY
     Dosage: UNK
     Dates: start: 20200523
  31. ENVARSUS XR [Suspect]
     Active Substance: TACROLIMUS
     Dosage: 2 MILLIGRAM, QD
     Dates: start: 20191129, end: 20200113
  32. DOXAZOSIN [Concomitant]
     Active Substance: DOXAZOSIN MESYLATE
     Indication: BENIGN PROSTATIC HYPERPLASIA
     Dosage: UNK
     Dates: start: 20190822, end: 20190822
  33. FENTANYL. [Concomitant]
     Active Substance: FENTANYL
     Indication: ANALGESIC THERAPY
     Dosage: UNK
     Dates: start: 20200527
  34. ATORVASTATIN [Concomitant]
     Active Substance: ATORVASTATIN
     Indication: HYPERCHOLESTEROLAEMIA
     Dosage: UNK
     Dates: start: 20190926, end: 20191024
  35. BUDESONIDE. [Concomitant]
     Active Substance: BUDESONIDE
     Indication: ANTIINFLAMMATORY THERAPY
     Dosage: UNK
     Dates: start: 20200521, end: 20200521
  36. ALPRAZOLAM. [Concomitant]
     Active Substance: ALPRAZOLAM
     Indication: ANXIETY
     Dosage: UNK
     Dates: start: 20200526
  37. CEFUROXIME. [Concomitant]
     Active Substance: CEFUROXIME
     Indication: ANTIBIOTIC THERAPY
     Dosage: UNK
     Dates: start: 20200210, end: 20200220
  38. DARBEPOETIN ALFA [Concomitant]
     Active Substance: DARBEPOETIN ALFA
     Indication: ANAEMIA
     Dosage: UNK
     Dates: start: 20190823, end: 20191121
  39. PAROXETINE. [Concomitant]
     Active Substance: PAROXETINE
     Dosage: UNK
     Dates: start: 20190823
  40. BECLOMETASONE DIPROPIONATE W/FORMOTEROL FUMAR [Concomitant]
     Active Substance: BECLOMETHASONE\FORMOTEROL
     Indication: ASTHMA
     Dosage: UNK
     Dates: start: 20200527
  41. FUROSEMIDE. [Concomitant]
     Active Substance: FUROSEMIDE
     Indication: DIURETIC THERAPY
     Dosage: UNK
     Dates: start: 20200309, end: 20200527
  42. ENVARSUS XR [Suspect]
     Active Substance: TACROLIMUS
     Dosage: 5 MILLIGRAM, QD
     Route: 048
     Dates: start: 20190821, end: 20190826
  43. DOXAZOSIN [Concomitant]
     Active Substance: DOXAZOSIN MESYLATE
     Dosage: UNK
     Dates: start: 20190824, end: 20190828
  44. OMEPRAZOLE. [Concomitant]
     Active Substance: OMEPRAZOLE
     Indication: PROPHYLAXIS AGAINST GASTROINTESTINAL ULCER
     Dosage: UNK
     Dates: start: 20190822
  45. AMLODIPINE [Concomitant]
     Active Substance: AMLODIPINE BESYLATE
     Indication: HYPERTENSION
     Dosage: UNK
     Dates: start: 20190822, end: 20190904
  46. MYCOPHENOLATE MOFETIL. [Suspect]
     Active Substance: MYCOPHENOLATE MOFETIL
     Dosage: 360 MG, QD
     Dates: start: 20191129
  47. METHYLPREDNISOLONE. [Suspect]
     Active Substance: METHYLPREDNISOLONE
     Indication: IMMUNOSUPPRESSANT DRUG THERAPY
     Dosage: 40 MG, QD
     Dates: start: 20190821, end: 20190821
  48. ENVARSUS XR [Suspect]
     Active Substance: TACROLIMUS
     Dosage: 4 MILLIGRAM, QD
     Dates: start: 20190905, end: 20190919
  49. ENVARSUS XR [Suspect]
     Active Substance: TACROLIMUS
     Dosage: 3 MILLIGRAM, QD
     Dates: start: 20190919, end: 20190926
  50. ENVARSUS XR [Suspect]
     Active Substance: TACROLIMUS
     Dosage: 1.5 MILLIGRAM, QD
     Dates: start: 20200114
  51. PREDNISONE. [Suspect]
     Active Substance: PREDNISONE
     Indication: IMMUNOSUPPRESSANT DRUG THERAPY
     Dosage: 20 MG, QD
     Dates: start: 20190821, end: 20190904
  52. PREDNISONE. [Suspect]
     Active Substance: PREDNISONE
     Dosage: 5 MILLIGRAM, QD
     Dates: start: 20191122
  53. TIMOGLOBULINA                      /00575401/ [Suspect]
     Active Substance: THYMOCYTE IMMUNE GLOBULIN NOS
     Indication: IMMUNOSUPPRESSANT DRUG THERAPY
     Dosage: 50 MG, QD
     Dates: start: 20190821, end: 20190821
  54. FOLIC ACID. [Concomitant]
     Active Substance: FOLIC ACID
     Indication: ANAEMIA
     Dosage: UNK
     Dates: start: 20190824
  55. SEPTRIN [Concomitant]
     Active Substance: SULFAMETHOXAZOLE\TRIMETHOPRIM
     Indication: ANTIBIOTIC THERAPY
     Dosage: UNK
     Dates: start: 20190901, end: 20200427
  56. ONDANSETRON [Concomitant]
     Active Substance: ONDANSETRON
     Indication: ANTIEMETIC SUPPORTIVE CARE
     Dosage: UNK
     Dates: start: 20180826, end: 20190826
  57. BUDESONIDE. [Concomitant]
     Active Substance: BUDESONIDE
     Indication: ADRENOCORTICAL STEROID THERAPY
     Dosage: UNK
     Dates: start: 20190820, end: 20190901

REACTIONS (1)
  - Diabetes mellitus [Recovered/Resolved]

NARRATIVE: CASE EVENT DATE: 20190822
